FAERS Safety Report 21210226 (Version 1)
Quarter: 2022Q3

REPORT INFORMATION
  Report Type: Spontaneous
  Country: NL (occurrence: NL)
  Receive Date: 20220814
  Receipt Date: 20220814
  Transmission Date: 20221026
  Serious: Yes (Other)
  Sender: FDA-Public Use
  Company Number: None

PATIENT
  Sex: Male
  Weight: 78 kg

DRUGS (2)
  1. ENALAPRIL [Suspect]
     Active Substance: ENALAPRIL
     Indication: Hypertension
     Dosage: 20 MG, QD (1D1)
     Route: 065
  2. ENALAPRIL [Suspect]
     Active Substance: ENALAPRIL
     Dosage: 10 MG, QD (1D1)
     Route: 065
     Dates: start: 2021

REACTIONS (1)
  - Erectile dysfunction [Recovering/Resolving]
